FAERS Safety Report 5053042-X (Version None)
Quarter: 2006Q3

REPORT INFORMATION
  Report Type: 
  Country: None (occurrence: None)
  Receive Date: 20060712
  Receipt Date: 20060526
  Transmission Date: 20061208
  Serious: Yes (Hospitalization, Other)
  Sender: FDA-Public Use
  Company Number: 2006057530

PATIENT
  Age: 48 Year
  Sex: Male
  Weight: 121.564 kg

DRUGS (1)
  1. CELEBREX [Suspect]
     Indication: ARTHRITIS
     Dosage: 200 MG (100 MG, 2 IN 1 D)
     Dates: start: 19990101, end: 20040101

REACTIONS (6)
  - CONDITION AGGRAVATED [None]
  - CORONARY ARTERY STENOSIS [None]
  - DEPRESSION [None]
  - HYPERTENSION [None]
  - INJURY [None]
  - MYOCARDIAL INFARCTION [None]
